FAERS Safety Report 12748639 (Version 5)
Quarter: 2016Q4

REPORT INFORMATION
  Report Type: Spontaneous
  Country: CA (occurrence: CA)
  Receive Date: 20160915
  Receipt Date: 20161220
  Transmission Date: 20170207
  Serious: Yes (Hospitalization, Other)
  Sender: FDA-Public Use
  Company Number: CA-GLAXOSMITHKLINE-CA2016GSK061447

PATIENT
  Age: 60 Year
  Sex: Female

DRUGS (6)
  1. ADVAIR HFA [Suspect]
     Active Substance: FLUTICASONE PROPIONATE\SALMETEROL XINAFOATE
     Indication: PRODUCT USED FOR UNKNOWN INDICATION
     Dosage: UNK
  2. CORTISONE [Suspect]
     Active Substance: CORTISONE\HYDROCORTISONE
     Indication: PRODUCT USED FOR UNKNOWN INDICATION
     Dosage: 3 MG, UNK
     Dates: start: 201607
  3. VENTOLIN [Suspect]
     Active Substance: ALBUTEROL SULFATE
     Indication: PRODUCT USED FOR UNKNOWN INDICATION
     Dosage: UNK
  4. NUCALA [Suspect]
     Active Substance: MEPOLIZUMAB
     Indication: ASTHMA
     Dosage: 100 MG, Z
     Route: 042
     Dates: start: 20160502
  5. NUCALA [Suspect]
     Active Substance: MEPOLIZUMAB
     Dosage: UNK
  6. NUCALA [Suspect]
     Active Substance: MEPOLIZUMAB
     Dosage: UNK
     Route: 042
     Dates: start: 20161215

REACTIONS (16)
  - Chest pain [Recovering/Resolving]
  - Pneumonitis [Recovering/Resolving]
  - Dyspnoea exertional [Not Recovered/Not Resolved]
  - Cough [Not Recovered/Not Resolved]
  - Malaise [Unknown]
  - Infection [Unknown]
  - Bronchitis [Unknown]
  - Dyspnoea [Not Recovered/Not Resolved]
  - General physical health deterioration [Unknown]
  - Therapeutic response delayed [Unknown]
  - Fatigue [Not Recovered/Not Resolved]
  - Cardiac disorder [Recovered/Resolved]
  - Blood pressure increased [Unknown]
  - Dyspnoea exertional [Unknown]
  - Asthenia [Unknown]
  - Respiratory failure [Unknown]

NARRATIVE: CASE EVENT DATE: 20160502
